FAERS Safety Report 14170953 (Version 1)
Quarter: 2017Q4

REPORT INFORMATION
  Report Type: Report from Study
  Country: US (occurrence: US)
  Receive Date: 20171108
  Receipt Date: 20171108
  Transmission Date: 20180321
  Serious: Yes (Hospitalization, Other)
  Sender: FDA-Public Use
  Company Number: US-GILEAD-2017-0303203

PATIENT
  Age: 57 Year
  Sex: Female

DRUGS (18)
  1. CELLCEPT [Concomitant]
     Active Substance: MYCOPHENOLATE MOFETIL\MYCOPHENOLATE MOFETIL HYDROCHLORIDE
  2. CYCLOBENZAPRIN [Concomitant]
     Active Substance: CYCLOBENZAPRINE
  3. OXYCODONE [Concomitant]
     Active Substance: OXYCODONE
  4. ZOFRAN [Concomitant]
     Active Substance: ONDANSETRON HYDROCHLORIDE
  5. AMBRISENTAN [Suspect]
     Active Substance: AMBRISENTAN
     Indication: PULMONARY HYPERTENSION
     Dosage: 10 MG, QD
     Route: 065
     Dates: start: 20130503
  6. PRAVASTATIN. [Concomitant]
     Active Substance: PRAVASTATIN
  7. PROGRAF [Concomitant]
     Active Substance: TACROLIMUS\TACROLIMUS ANHYDROUS
  8. ZOLOFT [Concomitant]
     Active Substance: SERTRALINE HYDROCHLORIDE
  9. PREDNISONE. [Concomitant]
     Active Substance: PREDNISONE
  10. XANAX [Concomitant]
     Active Substance: ALPRAZOLAM
  11. ASPIRINE [Concomitant]
     Active Substance: ASPIRIN
  12. FLONASE                            /00908302/ [Concomitant]
     Active Substance: MOMETASONE FUROATE
  13. GABAPENTIN. [Concomitant]
     Active Substance: GABAPENTIN
  14. SPIRIVA [Concomitant]
     Active Substance: TIOTROPIUM BROMIDE MONOHYDRATE
  15. ADCIRCA [Concomitant]
     Active Substance: TADALAFIL
  16. LEVOTHYROXIN [Concomitant]
     Active Substance: LEVOTHYROXINE
  17. TRAZODONE [Concomitant]
     Active Substance: TRAZODONE HYDROCHLORIDE
  18. PRILOSEC [Concomitant]
     Active Substance: OMEPRAZOLE MAGNESIUM

REACTIONS (3)
  - Surgery [Recovered/Resolved]
  - Addison^s disease [Not Recovered/Not Resolved]
  - Blood pressure increased [Not Recovered/Not Resolved]
